FAERS Safety Report 22925445 (Version 2)
Quarter: 2023Q4

REPORT INFORMATION
  Report Type: Spontaneous
  Country: US (occurrence: US)
  Receive Date: 20230908
  Receipt Date: 20231016
  Transmission Date: 20240110
  Serious: Yes (Life-Threatening)
  Sender: FDA-Public Use
  Company Number: US-MYLANLABS-2023M1091987

PATIENT
  Sex: Male
  Weight: 81.65 kg

DRUGS (1)
  1. EPINEPHRINE [Suspect]
     Active Substance: EPINEPHRINE
     Indication: Anaphylactic shock
     Dosage: 0.3 MILLIGRAM, QD
     Route: 065
     Dates: start: 2023

REACTIONS (3)
  - Device failure [Unknown]
  - Liquid product physical issue [Unknown]
  - Product colour issue [Unknown]
